FAERS Safety Report 4761063-7 (Version None)
Quarter: 2005Q3

REPORT INFORMATION
  Report Type: 
  Country: None (occurrence: None)
  Receive Date: 20050901
  Receipt Date: 20050719
  Transmission Date: 20060218
  Serious: Yes (Hospitalization, Other)
  Sender: FDA-Public Use
  Company Number: 11902

PATIENT
  Age: 6 Year
  Sex: Male

DRUGS (9)
  1. METHOTREXATE [Suspect]
     Indication: RHEUMATOID ARTHRITIS
     Dosage: 7.5 MG WEEKLY SC
     Route: 058
     Dates: start: 19980818, end: 19981028
  2. METHOTREXATE [Suspect]
     Indication: RHEUMATOID ARTHRITIS
     Dosage: 12.5 MG WEEKLY SC
     Route: 058
     Dates: start: 19981029, end: 19990126
  3. METHOTREXATE [Suspect]
     Indication: RHEUMATOID ARTHRITIS
     Dosage: 20 MG WEEKLY SC
     Route: 058
     Dates: start: 19990127, end: 19991216
  4. METHOTREXATE [Suspect]
     Indication: RHEUMATOID ARTHRITIS
     Dosage: 22.5 MG WEEKLY SC
     Route: 058
     Dates: start: 19991217, end: 20010613
  5. METHOTREXATE [Suspect]
     Indication: RHEUMATOID ARTHRITIS
     Dosage: 25 MG WEEKLY SC
     Route: 058
     Dates: start: 20010614, end: 20020401
  6. METHOTREXATE [Suspect]
     Indication: RHEUMATOID ARTHRITIS
     Dosage: 25 MG WEEKLY SC
     Route: 058
     Dates: start: 20041126
  7. PREDNISOLONE [Concomitant]
  8. IMMUNOGLOBULINS [Concomitant]
  9. FOLIC ACID [Concomitant]

REACTIONS (32)
  - ABDOMINAL PAIN [None]
  - ANAEMIA [None]
  - ARTHRALGIA [None]
  - C-REACTIVE PROTEIN INCREASED [None]
  - CONDITION AGGRAVATED [None]
  - DIZZINESS [None]
  - DYSPEPSIA [None]
  - INJECTION SITE ERYTHEMA [None]
  - INJECTION SITE HAEMORRHAGE [None]
  - INJECTION SITE INDURATION [None]
  - INJECTION SITE PRURITUS [None]
  - INJECTION SITE RASH [None]
  - INJECTION SITE REACTION [None]
  - INJECTION SITE WARMTH [None]
  - JOINT SWELLING [None]
  - JUVENILE ARTHRITIS [None]
  - LYMPHOCYTE COUNT INCREASED [None]
  - MUSCLE ABSCESS [None]
  - MUSCLE SWELLING [None]
  - MUSCULOSKELETAL STIFFNESS [None]
  - MYALGIA [None]
  - NAUSEA [None]
  - NEUTROPHIL COUNT INCREASED [None]
  - OEDEMA PERIPHERAL [None]
  - PAIN [None]
  - PAIN IN EXTREMITY [None]
  - PYREXIA [None]
  - RASH [None]
  - RED BLOOD CELL SEDIMENTATION RATE INCREASED [None]
  - STOMACH DISCOMFORT [None]
  - VOMITING [None]
  - WHITE BLOOD CELL COUNT INCREASED [None]
